FAERS Safety Report 4918554-5 (Version None)
Quarter: 2006Q1

REPORT INFORMATION
  Report Type: 
  Country: None (occurrence: None)
  Receive Date: 20060214
  Receipt Date: 20060131
  Transmission Date: 20060701
  Serious: Yes (Other)
  Sender: FDA-Public Use
  Company Number: DE200602000322

PATIENT
  Age: 65 Year
  Sex: Female

DRUGS (9)
  1. YENTREVE(DULOXETINE HYDROCHLORIDE) CAPSULE [Suspect]
     Indication: STRESS
     Dosage: 40 MG, 2/D, ORAL
     Route: 048
     Dates: start: 20050117, end: 20060117
  2. AQUAPHOR (XIPAMIDE FORMULATION) [Concomitant]
  3. SIMVASTATIN [Concomitant]
  4. METFORMIN HCL [Concomitant]
  5. OLMESARTAN MEDOXOMIL (OLMESARTAN MEDOXOMIL) [Concomitant]
  6. CARMEN (LERCANIDIPINE) [Concomitant]
  7. AGOPTON                          /GFR/(LANSOPRAZOLE) [Concomitant]
  8. CELEBREX                 /UNK/(CELECOXIB) [Concomitant]
  9. ACTOS                     /CAN/(PIOGLITAZONE HYDROCHLORIDE) [Concomitant]

REACTIONS (10)
  - BLOOD PRESSURE SYSTOLIC INCREASED [None]
  - CHILLS [None]
  - COLD SWEAT [None]
  - DIZZINESS [None]
  - DRUG INTERACTION [None]
  - HYPERTENSION [None]
  - INJECTION SITE IRRITATION [None]
  - RESTLESSNESS [None]
  - SEROTONIN SYNDROME [None]
  - TREMOR [None]
